FAERS Safety Report 9271096 (Version 1)
Quarter: 2013Q2

REPORT INFORMATION
  Report Type: Spontaneous
  Country: IT (occurrence: IT)
  Receive Date: 20130506
  Receipt Date: 20130506
  Transmission Date: 20140414
  Serious: Yes (Hospitalization, Other)
  Sender: FDA-Public Use
  Company Number: IT-JNJFOC-20130414442

PATIENT
  Sex: 0

DRUGS (1)
  1. INFLIXIMAB, RECOMBINANT [Suspect]
     Indication: CROHN^S DISEASE
     Dosage: ONCE EVERY 8 WEEKS DURING THE MAINTAINANCE THERAPY
     Route: 042

REACTIONS (4)
  - Abdominal abscess [Unknown]
  - Pneumonitis [Unknown]
  - Candida infection [Unknown]
  - Urticaria [Unknown]
